FAERS Safety Report 25379718 (Version 1)
Quarter: 2025Q2

REPORT INFORMATION
  Report Type: Report from Study
  Country: ZA (occurrence: ZA)
  Receive Date: 20250530
  Receipt Date: 20250530
  Transmission Date: 20250716
  Serious: Yes (Other)
  Sender: ROCHE
  Company Number: ZA-ROCHE-10000293442

PATIENT
  Sex: Male

DRUGS (1)
  1. OCREVUS [Suspect]
     Active Substance: OCRELIZUMAB
     Indication: Multiple sclerosis
     Dosage: THEREFTER 600MG EVERY AFTER 6 MONTHS
     Route: 042
     Dates: start: 20240528

REACTIONS (2)
  - Magnetic resonance imaging abnormal [Unknown]
  - Magnetic resonance imaging head abnormal [Unknown]
